FAERS Safety Report 6679349-8 (Version None)
Quarter: 2010Q2

REPORT INFORMATION
  Report Type: 
  Country: None (occurrence: None)
  Receive Date: 20100408
  Receipt Date: 20090616
  Transmission Date: 20101027
  Serious: No
  Sender: FDA-Public Use
  Company Number: 2009-00532

PATIENT
  Age: 33 Year
  Sex: Male
  Weight: 79.3795 kg

DRUGS (3)
  1. ZICAM ALLERGY RELIEF GEL SWABS [Suspect]
     Dates: start: 20090401, end: 20090401
  2. ZICAM COLD REMEDY NASAL GEL [Suspect]
  3. ZICAM INTENSE SINUS RELIEF [Suspect]
     Dates: start: 20090401, end: 20090401

REACTIONS (1)
  - ANOSMIA [None]
